FAERS Safety Report 23366077 (Version 1)
Quarter: 2024Q1

REPORT INFORMATION
  Report Type: Spontaneous
  Country: US (occurrence: US)
  Receive Date: 20240104
  Receipt Date: 20240104
  Transmission Date: 20240409
  Serious: No
  Sender: FDA-Public Use
  Company Number: US-BAYER-2024A000908

PATIENT
  Age: 59 Year
  Sex: Male

DRUGS (15)
  1. ADEMPAS [Suspect]
     Active Substance: RIOCIGUAT
     Indication: Pulmonary hypertension
     Dosage: UNK
  2. ADEMPAS [Suspect]
     Active Substance: RIOCIGUAT
     Indication: Pulmonary hypertension
     Dosage: 2.5 MG, TID
     Route: 048
     Dates: start: 20230519
  3. FAMOTIDINE [Concomitant]
     Active Substance: FAMOTIDINE
  4. SPIRONOLACTONE [Concomitant]
     Active Substance: SPIRONOLACTONE
  5. CARVEDILOL [Concomitant]
     Active Substance: CARVEDILOL
  6. LOPERAMIDE [Concomitant]
     Active Substance: LOPERAMIDE
  7. LOVASTATIN [Concomitant]
     Active Substance: LOVASTATIN
  8. JARDIANCE [Concomitant]
     Active Substance: EMPAGLIFLOZIN
  9. ZENPEP [Concomitant]
     Active Substance: PANCRELIPASE AMYLASE\PANCRELIPASE LIPASE\PANCRELIPASE PROTEASE
  10. DIGOXIN [Concomitant]
     Active Substance: DIGOXIN
  11. WARFARIN [Concomitant]
     Active Substance: WARFARIN
  12. ACETAMINOPHEN [Concomitant]
     Active Substance: ACETAMINOPHEN
  13. OMEPRAZOLE [Concomitant]
     Active Substance: OMEPRAZOLE
  14. DOCUSATE SODIUM [Concomitant]
     Active Substance: DOCUSATE SODIUM
  15. DICLOFENAC [Concomitant]
     Active Substance: DICLOFENAC

REACTIONS (3)
  - Abdominal pain [Recovering/Resolving]
  - Gastritis [None]
  - Gastrooesophageal reflux disease [None]

NARRATIVE: CASE EVENT DATE: 20231204
